FAERS Safety Report 8462304-5 (Version None)
Quarter: 2012Q2

REPORT INFORMATION
  Report Type: 
  Country: None (occurrence: None)
  Receive Date: 20120625
  Receipt Date: 20120614
  Transmission Date: 20120825
  Serious: Yes (Death, Hospitalization)
  Sender: FDA-Public Use
  Company Number: IL-GENZYME-POMP-1002250

PATIENT

DRUGS (2)
  1. MYOZYME [Suspect]
     Indication: GLYCOGEN STORAGE DISEASE TYPE II
     Dosage: 1.33 MG/KG, Q2W
     Route: 042
     Dates: end: 20110721
  2. DERALIN [Concomitant]
     Indication: PRODUCT USED FOR UNKNOWN INDICATION
     Dosage: 4 MG, QDX4
     Route: 065

REACTIONS (6)
  - RENAL FAILURE [None]
  - CARDIAC FAILURE CONGESTIVE [None]
  - DEATH [None]
  - HYPERTROPHIC CARDIOMYOPATHY [None]
  - COMA [None]
  - PNEUMONIA [None]
